FAERS Safety Report 8172845-6 (Version None)
Quarter: 2012Q1

REPORT INFORMATION
  Report Type: 
  Country: None (occurrence: None)
  Receive Date: 20120229
  Receipt Date: 20120229
  Transmission Date: 20120608
  Serious: Yes (Other)
  Sender: FDA-Public Use
  Company Number: None

PATIENT
  Age: 54 Year
  Sex: Female
  Weight: 90.718 kg

DRUGS (1)
  1. CYMBALTA [Suspect]
     Indication: MAJOR DEPRESSION
     Dosage: 90 MG
     Route: 048
     Dates: start: 20110301, end: 20120222

REACTIONS (7)
  - HYPOPHAGIA [None]
  - INSOMNIA [None]
  - NAUSEA [None]
  - ANGER [None]
  - RESTLESSNESS [None]
  - ABDOMINAL DISCOMFORT [None]
  - DRUG WITHDRAWAL SYNDROME [None]
